FAERS Safety Report 15276541 (Version 1)
Quarter: 2018Q4

REPORT INFORMATION
  Report Type: Spontaneous
  Country: MY (occurrence: MY)
  Receive Date: 20180814
  Receipt Date: 20180814
  Transmission Date: 20190204
  Serious: Yes (Hospitalization)
  Sender: FDA-Public Use
  Company Number: MY-ACELLA PHARMACEUTICALS, LLC-2053704

PATIENT
  Age: 48 Year
  Sex: Female

DRUGS (1)
  1. PHENYTOIN SODIUM. [Suspect]
     Active Substance: PHENYTOIN SODIUM
     Indication: INTENTIONAL OVERDOSE

REACTIONS (2)
  - Ataxia [Recovered/Resolved]
  - Ophthalmoplegia [Recovered/Resolved]
